FAERS Safety Report 14950393 (Version 1)
Quarter: 2018Q2

REPORT INFORMATION
  Report Type: Spontaneous
  Country: GB (occurrence: GB)
  Receive Date: 20180530
  Receipt Date: 20180530
  Transmission Date: 20180711
  Serious: Yes (Disabling)
  Sender: FDA-Public Use
  Company Number: GB-TEVA-2018-GB-899256

PATIENT
  Age: 85 Year
  Sex: Female
  Weight: 68 kg

DRUGS (8)
  1. CORACTEN [Concomitant]
     Active Substance: NIFEDIPINE
     Dosage: 1 DOSAGE FORMS DAILY;
     Route: 065
     Dates: start: 20170725
  2. QUININE [Concomitant]
     Active Substance: QUININE
     Dosage: 1 DOSAGE FORMS DAILY; EACH NIGHT
     Route: 065
     Dates: start: 20170725
  3. DOXYCYCLINE. [Concomitant]
     Active Substance: DOXYCYCLINE
     Dosage: TWO NOW THEN ONE DAILY
     Route: 065
     Dates: start: 20180312, end: 20180319
  4. BENDROFLUMETHIAZIDE [Concomitant]
     Active Substance: BENDROFLUMETHIAZIDE
     Dosage: 1 DOSAGE FORMS DAILY;
     Route: 065
     Dates: start: 20170725
  5. LISINOPRIL. [Concomitant]
     Active Substance: LISINOPRIL
     Dosage: 1 DOSAGE FORMS DAILY;
     Route: 065
     Dates: start: 20170725
  6. OILATUM [Concomitant]
     Dosage: 2 DOSAGE FORMS DAILY; TOP
     Route: 065
     Dates: start: 20170725
  7. CLARITHROMYCIN. [Suspect]
     Active Substance: CLARITHROMYCIN
     Route: 048
     Dates: start: 20180316, end: 20180319
  8. AMOXICILLIN. [Concomitant]
     Active Substance: AMOXICILLIN
     Dosage: 3 DOSAGE FORMS DAILY; SEVEN DAY COURSE
     Route: 065
     Dates: start: 20180309, end: 20180316

REACTIONS (3)
  - Pollakiuria [Unknown]
  - Hallucinations, mixed [Recovered/Resolved with Sequelae]
  - Abdominal discomfort [Unknown]

NARRATIVE: CASE EVENT DATE: 20180316
